FAERS Safety Report 5325788-7 (Version None)
Quarter: 2007Q2

REPORT INFORMATION
  Report Type: 
  Country: None (occurrence: None)
  Receive Date: 20070510
  Receipt Date: 20070424
  Transmission Date: 20071010
  Serious: Yes (Hospitalization, Other)
  Sender: FDA-Public Use
  Company Number: 155106ISR

PATIENT
  Age: 46 Year
  Sex: Female

DRUGS (3)
  1. TRIMETHOPRIM [Suspect]
     Indication: URINARY TRACT INFECTION
  2. CEFUROXIME [Suspect]
     Indication: LOWER RESPIRATORY TRACT INFECTION
     Dosage: INTRAVENOUS
     Route: 042
  3. CLARITHROMYCIN [Suspect]

REACTIONS (6)
  - BLOOD PRESSURE DECREASED [None]
  - BLOOD PRESSURE INCREASED [None]
  - CLOSTRIDIUM DIFFICILE COLITIS [None]
  - MEGACOLON [None]
  - SEPSIS [None]
  - VOMITING [None]
